FAERS Safety Report 10051597 (Version 1)
Quarter: 2014Q2

REPORT INFORMATION
  Report Type: Spontaneous
  Country: GB (occurrence: GB)
  Receive Date: 20140401
  Receipt Date: 20140401
  Transmission Date: 20141212
  Serious: Yes (Other)
  Sender: FDA-Public Use
  Company Number: GB-MYLANLABS-2014S1006476

PATIENT
  Age: 74 Year
  Sex: Female
  Weight: 74 kg

DRUGS (5)
  1. LANSOPRAZOLE [Suspect]
     Indication: GASTROOESOPHAGEAL REFLUX DISEASE
     Route: 048
     Dates: start: 20140206, end: 20140213
  2. GAVISCON [Concomitant]
  3. LAMOTRIGINE [Concomitant]
     Dosage: 75 MG EVERY MORNING, 100 MG EVERY NIGHT.
  4. LEVOTHYROXINE [Concomitant]
  5. SIMVASTATIN [Concomitant]
     Dosage: EVERY NIGHT.

REACTIONS (5)
  - Liver function test abnormal [Recovering/Resolving]
  - Malaise [Not Recovered/Not Resolved]
  - Fatigue [Not Recovered/Not Resolved]
  - Lethargy [Not Recovered/Not Resolved]
  - Decreased appetite [Not Recovered/Not Resolved]
